FAERS Safety Report 10897561 (Version 2)
Quarter: 2015Q2

REPORT INFORMATION
  Report Type: Report from Study
  Country: JP (occurrence: JP)
  Receive Date: 20150309
  Receipt Date: 20150518
  Transmission Date: 20150821
  Serious: Yes (Life-Threatening)
  Sender: FDA-Public Use
  Company Number: JP-SA-2015SA027725

PATIENT
  Age: 22 Year
  Sex: Male

DRUGS (2)
  1. PREDONINE [Concomitant]
     Active Substance: PREDNISOLONE\PREDNISOLONE ACETATE\PREDNISOLONE SODIUM SUCCINATE
     Indication: ACUTE LYMPHOCYTIC LEUKAEMIA RECURRENT
     Dosage: DOSE: 5 MG/BODY
     Route: 048
     Dates: start: 20140813, end: 20140819
  2. EVOLTRA [Suspect]
     Active Substance: CLOFARABINE
     Indication: ACUTE LYMPHOCYTIC LEUKAEMIA
     Dosage: DOSE- 40 MG/ BODY
     Route: 042
     Dates: start: 20140814, end: 20140818

REACTIONS (1)
  - Mucous membrane disorder [Not Recovered/Not Resolved]

NARRATIVE: CASE EVENT DATE: 20140820
